FAERS Safety Report 24182621 (Version 4)
Quarter: 2025Q1

REPORT INFORMATION
  Report Type: Report from Study
  Country: CA (occurrence: CA)
  Receive Date: 20240807
  Receipt Date: 20250114
  Transmission Date: 20250409
  Serious: Yes (Other)
  Sender: BIOCON
  Company Number: CA-BIOCON BIOLOGICS LIMITED-BBL2024005616

PATIENT

DRUGS (5)
  1. HULIO [Interacting]
     Active Substance: ADALIMUMAB-FKJP
     Indication: Psoriatic arthropathy
     Route: 058
     Dates: start: 20240704
  2. HULIO [Interacting]
     Active Substance: ADALIMUMAB-FKJP
     Route: 058
  3. CLONAZEPAM [Interacting]
     Active Substance: CLONAZEPAM
     Indication: Product used for unknown indication
     Route: 065
  4. CORTISONE [Concomitant]
     Active Substance: CORTISONE
     Indication: Product used for unknown indication
     Route: 065
  5. CODEINE [Concomitant]
     Active Substance: CODEINE
     Indication: Product used for unknown indication
     Route: 065

REACTIONS (21)
  - Monoplegia [Unknown]
  - Pain [Unknown]
  - Gait inability [Unknown]
  - Crying [Unknown]
  - Arthralgia [Unknown]
  - Suicidal ideation [Unknown]
  - Osteoarthritis [Unknown]
  - Post-traumatic stress disorder [Unknown]
  - Drug interaction [Unknown]
  - Fear [Unknown]
  - Depressed mood [Unknown]
  - Victim of sexual abuse [Unknown]
  - Illness [Unknown]
  - Product dose omission issue [Unknown]
  - Feeling abnormal [Not Recovered/Not Resolved]
  - Feeling hot [Unknown]
  - Asthenia [Not Recovered/Not Resolved]
  - Muscular weakness [Not Recovered/Not Resolved]
  - Treatment noncompliance [Unknown]
  - Inappropriate schedule of product administration [Unknown]
  - Device mechanical issue [Unknown]

NARRATIVE: CASE EVENT DATE: 20241122
